FAERS Safety Report 24413602 (Version 1)
Quarter: 2024Q4

REPORT INFORMATION
  Report Type: Spontaneous
  Country: ES (occurrence: A1)
  Receive Date: 20241008
  Receipt Date: 20241008
  Transmission Date: 20250115
  Serious: Yes (Hospitalization, Other)
  Sender: BRECKENRIDGE
  Company Number: A1-Breckenridge Pharmaceutical, Inc.-2162680

PATIENT
  Sex: Female

DRUGS (5)
  1. OMEPRAZOLE [Suspect]
     Active Substance: OMEPRAZOLE
  2. FILGRASTIM [Concomitant]
     Active Substance: FILGRASTIM
  3. RIVAROXABAN [Concomitant]
     Active Substance: RIVAROXABAN
  4. POMALIDOMIDE [Concomitant]
     Active Substance: POMALIDOMIDE
  5. DEXAMETHASONE [Concomitant]
     Active Substance: DEXAMETHASONE

REACTIONS (1)
  - Pneumonia [Not Recovered/Not Resolved]
